FAERS Safety Report 4311073-9 (Version None)
Quarter: 2004Q1

REPORT INFORMATION
  Report Type: 
  Country: None (occurrence: None)
  Receive Date: 20040302
  Receipt Date: 20040217
  Transmission Date: 20041129
  Serious: Yes (Other)
  Sender: FDA-Public Use
  Company Number: S04-USA-00838-01

PATIENT
  Age: 47 Year
  Sex: Female

DRUGS (5)
  1. LEXAPRO [Suspect]
     Indication: DEPRESSION
     Dosage: 10 MG QD PO
     Route: 048
     Dates: start: 20040211, end: 20040214
  2. KLONOPIN [Concomitant]
  3. ARTHROTEC [Concomitant]
  4. ATIVAN [Concomitant]
  5. VICODIN [Concomitant]

REACTIONS (2)
  - DYSKINESIA [None]
  - FACIAL PALSY [None]
